FAERS Safety Report 4288790-2 (Version None)
Quarter: 2004Q1

REPORT INFORMATION
  Report Type: 
  Country: None (occurrence: None)
  Receive Date: 20040127
  Receipt Date: 20040123
  Transmission Date: 20041129
  Serious: Yes (Hospitalization, Other)
  Sender: FDA-Public Use
  Company Number: 200308857

PATIENT
  Age: 66 Year
  Sex: Male

DRUGS (4)
  1. ALBUMINAR-5 [Suspect]
     Indication: HYPOALBUMINAEMIA
     Dosage: 250 ML DAILY IV
     Route: 042
     Dates: start: 20031018, end: 20031021
  2. ALBUMINAR-5 [Suspect]
  3. MIXED AMINO ACID/CARBOHYDRATE/ELECTROLYTE COMBINE [Concomitant]
  4. FAMOTIDINE [Concomitant]

REACTIONS (7)
  - CHILLS [None]
  - HAEMOLYSIS [None]
  - HEART RATE INCREASED [None]
  - NAUSEA [None]
  - PYREXIA [None]
  - SEPSIS [None]
  - SERRATIA INFECTION [None]
